FAERS Safety Report 16971220 (Version 1)
Quarter: 2019Q4

REPORT INFORMATION
  Report Type: Spontaneous
  Country: US (occurrence: US)
  Receive Date: 20191029
  Receipt Date: 20191029
  Transmission Date: 20200122
  Serious: Yes (Hospitalization)
  Sender: FDA-Public Use
  Company Number: US-JNJFOC-20191029240

PATIENT
  Sex: Female
  Weight: 80 kg

DRUGS (3)
  1. POMALYST [Concomitant]
     Active Substance: POMALIDOMIDE
     Route: 048
  2. DARZALEX [Suspect]
     Active Substance: DARATUMUMAB
     Indication: PLASMA CELL MYELOMA
     Route: 042
     Dates: start: 20190106, end: 201910
  3. DARZALEX [Suspect]
     Active Substance: DARATUMUMAB
     Route: 042
     Dates: start: 20190106, end: 201910

REACTIONS (1)
  - Panic attack [Unknown]
